FAERS Safety Report 8227360-8 (Version None)
Quarter: 2012Q1

REPORT INFORMATION
  Report Type: 
  Country: None (occurrence: None)
  Receive Date: 20120322
  Receipt Date: 20120316
  Transmission Date: 20120608
  Serious: Yes (Hospitalization, Other)
  Sender: FDA-Public Use
  Company Number: US-BAYER-2011-112137

PATIENT
  Age: 36 Year
  Sex: Female
  Weight: 58.957 kg

DRUGS (6)
  1. YASMIN [Suspect]
     Indication: CONTRACEPTION
     Dosage: UNK
     Route: 048
     Dates: start: 19910101, end: 20080101
  2. CLARINEX [Concomitant]
  3. ORTHO TRI-CYCLEN [Concomitant]
  4. YAZ [Suspect]
     Indication: CONTRACEPTION
     Dosage: UNK
     Route: 048
     Dates: start: 19910101, end: 20080101
  5. FLONASE [Concomitant]
  6. NASONEX [Concomitant]

REACTIONS (9)
  - EMOTIONAL DISTRESS [None]
  - ANHEDONIA [None]
  - GALLBLADDER INJURY [None]
  - GENERAL PHYSICAL HEALTH DETERIORATION [None]
  - PAIN [None]
  - ANXIETY [None]
  - CHOLELITHIASIS [None]
  - INJURY [None]
  - PANCREATITIS [None]
